FAERS Safety Report 8167580-4 (Version None)
Quarter: 2012Q1

REPORT INFORMATION
  Report Type: 
  Country: None (occurrence: None)
  Receive Date: 20120221
  Receipt Date: 20120204
  Transmission Date: 20120608
  Serious: No
  Sender: FDA-Public Use
  Company Number: ENDC20120008

PATIENT
  Age: 40 Year
  Sex: Female
  Weight: 81.1939 kg

DRUGS (1)
  1. OXYCODONE AND ACETAMINOPHEN [Suspect]
     Indication: PAIN
     Dosage: 10/ 325 MG, UNKNOWN, ORAL
     Route: 048
     Dates: start: 20120126

REACTIONS (1)
  - DRUG INEFFECTIVE [None]
